FAERS Safety Report 23527455 (Version 1)
Quarter: 2024Q1

REPORT INFORMATION
  Report Type: Spontaneous
  Country: US (occurrence: None)
  Receive Date: 20240215
  Receipt Date: 20240215
  Transmission Date: 20240409
  Serious: Yes (Death)
  Sender: FDA-Public Use
  Company Number: None

PATIENT
  Age: 71 Year
  Sex: Male

DRUGS (1)
  1. LENALIDOMIDE [Suspect]
     Active Substance: LENALIDOMIDE
     Indication: Diffuse large B-cell lymphoma
     Dosage: 10MG QD ORAL
     Route: 048
     Dates: start: 20231113, end: 20231123

REACTIONS (4)
  - Sepsis [None]
  - Lactic acidosis [None]
  - Respiratory distress [None]
  - Seizure [None]

NARRATIVE: CASE EVENT DATE: 20231130
